FAERS Safety Report 6584528-4 (Version None)
Quarter: 2010Q1

REPORT INFORMATION
  Report Type: 
  Country: None (occurrence: None)
  Receive Date: 20100217
  Receipt Date: 20100209
  Transmission Date: 20100710
  Serious: Yes (Hospitalization)
  Sender: FDA-Public Use
  Company Number: US-BIOGENIDEC-2010BI004445

PATIENT
  Age: 62 Year
  Sex: Female
  Weight: 49 kg

DRUGS (2)
  1. AVONEX [Suspect]
     Indication: MULTIPLE SCLEROSIS
     Route: 030
     Dates: start: 20000101, end: 20030101
  2. AVONEX [Suspect]
     Route: 030
     Dates: start: 20030101

REACTIONS (10)
  - CARBON DIOXIDE INCREASED [None]
  - CONSTIPATION [None]
  - CYSTITIS [None]
  - DISORIENTATION [None]
  - DRY MOUTH [None]
  - SEPSIS [None]
  - SYNCOPE [None]
  - TOOTH LOSS [None]
  - URINARY INCONTINENCE [None]
  - URINARY RETENTION [None]
